FAERS Safety Report 5466605-4 (Version None)
Quarter: 2007Q3

REPORT INFORMATION
  Report Type: 
  Country: None (occurrence: None)
  Receive Date: 20070925
  Receipt Date: 20070914
  Transmission Date: 20080115
  Serious: Yes (Hospitalization)
  Sender: FDA-Public Use
  Company Number: PHHO2007NL15210

PATIENT
  Age: 55 Year
  Weight: 77 kg

DRUGS (3)
  1. MYCOPHENOLIC ACID ERL+ [Suspect]
     Indication: RENAL TRANSPLANT
  2. NEORAL [Suspect]
     Indication: RENAL TRANSPLANT
  3. PREDNISOLONE [Suspect]
     Indication: RENAL TRANSPLANT

REACTIONS (7)
  - BLOOD CREATININE INCREASED [None]
  - HAEMATURIA [None]
  - HYDRONEPHROSIS [None]
  - NEPHROSTOMY [None]
  - RENAL IMPAIRMENT [None]
  - URETERIC STENOSIS [None]
  - UROSEPSIS [None]
